FAERS Safety Report 9376171 (Version 1)
Quarter: 2013Q3

REPORT INFORMATION
  Report Type: Report from Study
  Country: CA (occurrence: CA)
  Receive Date: 20130701
  Receipt Date: 20130701
  Transmission Date: 20140515
  Serious: Yes (Hospitalization)
  Sender: FDA-Public Use
  Company Number: CA-ROCHE-1242389

PATIENT
  Age: 10 Year
  Sex: Male

DRUGS (1)
  1. PULMOZYME [Suspect]
     Indication: CYSTIC FIBROSIS
     Route: 065
     Dates: start: 20130417, end: 20130501

REACTIONS (3)
  - Lung infection [Recovered/Resolved]
  - Osteomyelitis [Recovered/Resolved]
  - Pulmonary function test decreased [Recovered/Resolved]
